FAERS Safety Report 9212953 (Version 3)
Quarter: 2013Q2

REPORT INFORMATION
  Report Type: Report from Study
  Country: US (occurrence: US)
  Receive Date: 20130405
  Receipt Date: 20130513
  Transmission Date: 20140414
  Serious: Yes (Hospitalization)
  Sender: FDA-Public Use
  Company Number: US-JNJFOC-20130203004

PATIENT
  Age: 25 Year
  Sex: Female

DRUGS (15)
  1. REMICADE [Suspect]
     Indication: CROHN^S DISEASE
     Route: 042
  2. REMICADE [Suspect]
     Indication: CROHN^S DISEASE
     Route: 042
     Dates: start: 20130222
  3. REMICADE [Suspect]
     Indication: CROHN^S DISEASE
     Route: 042
     Dates: start: 20130125
  4. REMICADE [Suspect]
     Indication: CROHN^S DISEASE
     Route: 042
     Dates: start: 20130110
  5. CYTOMEL [Concomitant]
     Route: 065
  6. SYNTHROID [Concomitant]
     Route: 065
  7. SAVELLA [Concomitant]
     Route: 065
  8. VOLTAREN [Concomitant]
     Route: 065
  9. METOPROLOL [Concomitant]
     Route: 065
  10. DILAUDID [Concomitant]
     Route: 065
  11. VICODIN [Concomitant]
     Route: 065
  12. FLEXERIL [Concomitant]
     Route: 065
  13. BENADRYL [Concomitant]
     Dosage: GIVEN 30 MINUTES BEFORE INFLIXIMAB INFUSION
     Route: 065
  14. XANAX [Concomitant]
     Route: 065
  15. TYLENOL [Concomitant]
     Indication: PREMEDICATION
     Dosage: GIVEN 30 MINUTES BEFORE INFLIXIMAB INFUSION
     Route: 065

REACTIONS (8)
  - Drug hypersensitivity [Recovering/Resolving]
  - Respiratory distress [Recovering/Resolving]
  - Pyrexia [Recovering/Resolving]
  - Joint lock [Recovering/Resolving]
  - Infusion related reaction [Recovering/Resolving]
  - Urticaria [Recovering/Resolving]
  - Ear discomfort [Recovering/Resolving]
  - Flushing [Recovering/Resolving]
